FAERS Safety Report 9268194 (Version 1)
Quarter: 2013Q2

REPORT INFORMATION
  Report Type: Spontaneous
  Country: US (occurrence: US)
  Receive Date: 20130502
  Receipt Date: 20130502
  Transmission Date: 20140414
  Serious: No
  Sender: FDA-Public Use
  Company Number: US-ALEXION-A201201843

PATIENT
  Age: 84 Year
  Sex: Male
  Weight: 88.8 kg

DRUGS (5)
  1. SOLIRIS 300MG [Suspect]
     Indication: PAROXYSMAL NOCTURNAL HAEMOGLOBINURIA
     Dosage: UNK
     Route: 042
     Dates: start: 200706
  2. SOLIRIS 300MG [Suspect]
     Dosage: UNK, Q12D
     Route: 042
  3. SOLIRIS 300MG [Suspect]
     Dosage: UNK Q15D
     Route: 042
  4. FOLATE [Concomitant]
     Dosage: 5 MG, QD
  5. INFLUENZA VACCINE [Concomitant]
     Indication: IMMUNISATION
     Dosage: UNK
     Dates: start: 2012, end: 2012

REACTIONS (6)
  - Dental caries [Unknown]
  - Chromaturia [Recovered/Resolved]
  - Orthopnoea [Not Recovered/Not Resolved]
  - Rash [Recovered/Resolved]
  - Oedema peripheral [Recovering/Resolving]
  - Fatigue [Not Recovered/Not Resolved]
